FAERS Safety Report 24024354 (Version 1)
Quarter: 2024Q2

REPORT INFORMATION
  Report Type: Report from Study
  Country: PH (occurrence: PH)
  Receive Date: 20240627
  Receipt Date: 20240627
  Transmission Date: 20240715
  Serious: No
  Sender: FDA-Public Use
  Company Number: PH-ROCHE-3541647

PATIENT
  Age: 35 Year
  Sex: Female
  Weight: 47.17 kg

DRUGS (1)
  1. PHESGO [Suspect]
     Active Substance: HYALURONIDASE-ZZXF\PERTUZUMAB\TRASTUZUMAB
     Indication: HER2 positive breast cancer
     Dosage: 600MG/ 1VIALS
     Route: 058

REACTIONS (1)
  - Red blood cell count decreased [Unknown]
